FAERS Safety Report 10048505 (Version 1)
Quarter: 2014Q1

REPORT INFORMATION
  Report Type: Spontaneous
  Country: US (occurrence: None)
  Receive Date: 20140306
  Receipt Date: 20140306
  Transmission Date: 20141002
  Serious: Yes (Other)
  Sender: FDA-Public Use
  Company Number: 163-21880-13012861

PATIENT
  Age: 52 Year
  Sex: Male

DRUGS (12)
  1. REVLIMID [Suspect]
     Indication: PLASMA CELL MYELOMA
     Dosage: 1 IN 1 D
     Route: 048
     Dates: start: 201004
  2. PROTONIX DR [Concomitant]
  3. FML FORTE (FLUOROMETHOLONE) [Concomitant]
  4. JANUVIA (SITAGLIPTINPHOSPHATE) [Concomitant]
  5. VALACYCLOVIR HCL (VALACICLOVIR HYDROCHLORIDE) [Concomitant]
  6. SYNTHROID (LEVOTHYROXINE SODIUM) [Concomitant]
  7. AMOXICILLIN [Concomitant]
  8. METFORMIN HCL (METFORMIN HYDROCHLORIDE) [Concomitant]
  9. FLOMAX (TAMSULOSIN HYDROCHLORIDE) [Concomitant]
  10. CALCIUM + VITAMIN D (LEKOVIT CA) [Concomitant]
  11. ASPIRIN ADULT (ACETYLSALICYLIC ACID) [Concomitant]
  12. COMPLETE MULTIVITAMIN (MULTIVITAMINS) [Concomitant]

REACTIONS (6)
  - Seasonal allergy [None]
  - Nasopharyngitis [None]
  - Respiratory tract congestion [None]
  - Cough [None]
  - Nasal congestion [None]
  - Chest discomfort [None]
